FAERS Safety Report 5979552-6 (Version None)
Quarter: 2008Q4

REPORT INFORMATION
  Report Type: 
  Country: None (occurrence: None)
  Receive Date: 20081204
  Receipt Date: 20081125
  Transmission Date: 20090506
  Serious: Yes (Life-Threatening, Hospitalization)
  Sender: FDA-Public Use
  Company Number: US-ELI_LILLY_AND_COMPANY-US200809002335

PATIENT
  Sex: Female

DRUGS (6)
  1. CYMBALTA [Suspect]
     Indication: DEPRESSION
     Dosage: 60 MG, UNK
     Route: 048
     Dates: start: 20080101
  2. HYDROCHLOROTHIAZIDE [Concomitant]
     Dosage: 12.5 MG, DAILY (1/D)
  3. LOSARTAN POTASSIUM [Concomitant]
     Dosage: 100 MG, DAILY (1/D)
  4. IRON [Concomitant]
     Dosage: 325 MG, DAILY (1/D)
  5. ASPIRIN [Concomitant]
     Dosage: 81 MG, DAILY (1/D)
  6. OMEPRAZOLE [Concomitant]
     Dosage: 20 MG, DAILY (1/D)

REACTIONS (2)
  - CEREBROVASCULAR ACCIDENT [None]
  - HYPONATRAEMIA [None]
